FAERS Safety Report 22538178 (Version 2)
Quarter: 2023Q2

REPORT INFORMATION
  Report Type: Spontaneous
  Country: TR (occurrence: TR)
  Receive Date: 20230608
  Receipt Date: 20230616
  Transmission Date: 20230722
  Serious: Yes (Hospitalization)
  Sender: FDA-Public Use
  Company Number: TR-KOREA IPSEN Pharma-2023-13590

PATIENT
  Sex: Female

DRUGS (1)
  1. DYSPORT [Suspect]
     Active Substance: ABOBOTULINUMTOXINA
     Indication: Hyperhidrosis
     Dosage: 1.5 VIAL
     Route: 050

REACTIONS (5)
  - Hypoaesthesia [Unknown]
  - Poverty of speech [Unknown]
  - Vomiting [Unknown]
  - Dizziness [Unknown]
  - Dysphagia [Unknown]
